FAERS Safety Report 20468357 (Version 2)
Quarter: 2022Q1

REPORT INFORMATION
  Report Type: Report from Study
  Country: BR (occurrence: BR)
  Receive Date: 20220214
  Receipt Date: 20220316
  Transmission Date: 20220424
  Serious: Yes (Hospitalization, Disabling)
  Sender: FDA-Public Use
  Company Number: BR-ABBVIE-22K-020-4276454-00

PATIENT
  Sex: Female
  Weight: 52 kg

DRUGS (4)
  1. RINVOQ [Suspect]
     Active Substance: UPADACITINIB
     Indication: Rheumatoid arthritis
     Route: 048
  2. METHOTREXATE [Concomitant]
     Active Substance: METHOTREXATE
     Indication: Rheumatoid arthritis
     Dosage: 4 TABLETS PER WEEK
  3. PREDNISONE [Concomitant]
     Active Substance: PREDNISONE
     Indication: Rheumatoid arthritis
     Dosage: DAILY
  4. PANTOPRAZOLE [Concomitant]
     Active Substance: PANTOPRAZOLE
     Indication: Prophylaxis

REACTIONS (18)
  - Mass [Unknown]
  - Pain [Not Recovered/Not Resolved]
  - Gait disturbance [Not Recovered/Not Resolved]
  - Pruritus [Unknown]
  - Sciatica [Not Recovered/Not Resolved]
  - Groin pain [Unknown]
  - Constipation [Recovered/Resolved]
  - Rheumatic disorder [Unknown]
  - Nail bed inflammation [Unknown]
  - Osteoporosis [Not Recovered/Not Resolved]
  - Contusion [Not Recovered/Not Resolved]
  - Pain in extremity [Recovering/Resolving]
  - Back pain [Unknown]
  - Oedema [Unknown]
  - Intervertebral disc protrusion [Not Recovered/Not Resolved]
  - Muscular weakness [Unknown]
  - Arteriosclerosis [Unknown]
  - Blood cholesterol decreased [Unknown]

NARRATIVE: CASE EVENT DATE: 20220101
